FAERS Safety Report 20755577 (Version 3)
Quarter: 2022Q2

REPORT INFORMATION
  Report Type: Spontaneous
  Country: MX (occurrence: None)
  Receive Date: 20220427
  Receipt Date: 20220512
  Transmission Date: 20220721
  Serious: Yes (Hospitalization)
  Sender: FDA-Public Use
  Company Number: 2022A158944

PATIENT
  Age: 9948 Day
  Sex: Female
  Weight: 59 kg

DRUGS (2)
  1. SYMBICORT [Suspect]
     Active Substance: BUDESONIDE\FORMOTEROL FUMARATE DIHYDRATE
     Indication: Asthma
     Dosage: 1UG/INHAL TWO TIMES A DAY
     Route: 055
     Dates: start: 20211220, end: 20220419
  2. PULMICORT TURBUHALER [Suspect]
     Active Substance: BUDESONIDE
     Indication: Asthma
     Dosage: 1UG/INHAL TWO TIMES A DAY
     Route: 055
     Dates: start: 20211220, end: 20220419

REACTIONS (6)
  - Swelling face [Recovering/Resolving]
  - Tachycardia [Not Recovered/Not Resolved]
  - Thyroid function test abnormal [Recovered/Resolved]
  - Thyroid disorder [Recovering/Resolving]
  - Peripheral swelling [Recovering/Resolving]
  - Incorrect dose administered [Unknown]

NARRATIVE: CASE EVENT DATE: 20220110
